FAERS Safety Report 5124541-7 (Version None)
Quarter: 2006Q3

REPORT INFORMATION
  Report Type: 
  Country: None (occurrence: None)
  Receive Date: 20060821
  Receipt Date: 20060427
  Transmission Date: 20061208
  Serious: No
  Sender: FDA-Public Use
  Company Number: TPA2006A00727

PATIENT
  Age: 70 Year
  Sex: Female
  Weight: 68.0396 kg

DRUGS (5)
  1. ROZEREM [Suspect]
     Indication: INSOMNIA
     Dosage: 8 MG, 1 IN 1 D, PER ORAL
     Route: 048
     Dates: start: 20060101, end: 20060101
  2. LUNESTA [Suspect]
     Indication: INSOMNIA
     Dosage: SEE IMAGE
     Route: 048
     Dates: start: 20060101, end: 20060101
  3. LUNESTA [Suspect]
     Indication: INSOMNIA
     Dosage: SEE IMAGE
     Route: 048
     Dates: start: 20060101
  4. CLONAZEPAM (CLONAZEPAM) (2 MILLIGRAM) [Concomitant]
  5. VALERIAN (DIPHENHYDRAMINE HYDROCHLORIDE, VALERIANA OFFICINALIS ROOT, C [Concomitant]

REACTIONS (5)
  - ANXIETY [None]
  - DISSOCIATION [None]
  - FEELING ABNORMAL [None]
  - INITIAL INSOMNIA [None]
  - SOMNOLENCE [None]
